FAERS Safety Report 16942624 (Version 1)
Quarter: 2019Q4

REPORT INFORMATION
  Report Type: Spontaneous
  Country: US (occurrence: US)
  Receive Date: 20191021
  Receipt Date: 20191021
  Transmission Date: 20200122
  Serious: Yes (Hospitalization)
  Sender: FDA-Public Use
  Company Number: US-ACTELION-A-NJ2019-197043

PATIENT
  Sex: Male
  Weight: 102.04 kg

DRUGS (15)
  1. OPSUMIT [Suspect]
     Active Substance: MACITENTAN
     Indication: PULMONARY HYPERTENSION
     Dosage: 10 MG
     Route: 048
  2. KLOR-CON M20 [Concomitant]
     Active Substance: POTASSIUM CHLORIDE
  3. METHOTREXATE. [Concomitant]
     Active Substance: METHOTREXATE
  4. DIGOXIN. [Concomitant]
     Active Substance: DIGOXIN
  5. WARFARIN SODIUM. [Concomitant]
     Active Substance: WARFARIN SODIUM
  6. TRACLEER [Concomitant]
     Active Substance: BOSENTAN
     Indication: PULMONARY ARTERIAL HYPERTENSION
  7. ADEMPAS [Concomitant]
     Active Substance: RIOCIGUAT
  8. XELJANZ [Concomitant]
     Active Substance: TOFACITINIB CITRATE
  9. SPIRONOLACTONE. [Concomitant]
     Active Substance: SPIRONOLACTONE
  10. BUMETANIDE. [Concomitant]
     Active Substance: BUMETANIDE
  11. ADCIRCA [Concomitant]
     Active Substance: TADALAFIL
  12. LEUCOVORIN CA [Concomitant]
     Active Substance: LEUCOVORIN CALCIUM
  13. UPTRAVI [Suspect]
     Active Substance: SELEXIPAG
     Indication: PULMONARY HYPERTENSION
     Dosage: 1600 MCG, BID
     Route: 048
  14. WARFARIN [Concomitant]
     Active Substance: WARFARIN
  15. PREDNISONE. [Concomitant]
     Active Substance: PREDNISONE

REACTIONS (2)
  - Nephrectomy [Unknown]
  - Renal cancer [Unknown]
